FAERS Safety Report 20809609 (Version 3)
Quarter: 2022Q3

REPORT INFORMATION
  Report Type: Spontaneous
  Country: GB (occurrence: GB)
  Receive Date: 20220510
  Receipt Date: 20220707
  Transmission Date: 20221027
  Serious: No
  Sender: FDA-Public Use
  Company Number: GB-BECTON DICKINSON-GB-BD-22-000143

PATIENT
  Age: 57 Year
  Sex: Female

DRUGS (1)
  1. CHLORAPREP ONE-STEP SEPP [Suspect]
     Active Substance: CHLORHEXIDINE GLUCONATE\ISOPROPYL ALCOHOL
     Indication: Infection prophylaxis
     Dosage: UNK
     Route: 061

REACTIONS (4)
  - Wound [Recovered/Resolved]
  - Product package associated injury [Recovered/Resolved]
  - Device breakage [Unknown]
  - Occupational exposure to product [Unknown]

NARRATIVE: CASE EVENT DATE: 20220314
